FAERS Safety Report 7860787-2 (Version None)
Quarter: 2011Q4

REPORT INFORMATION
  Report Type: 
  Country: None (occurrence: None)
  Receive Date: 20111027
  Receipt Date: 20111013
  Transmission Date: 20120403
  Serious: Yes (Hospitalization)
  Sender: FDA-Public Use
  Company Number: US-BAYER-2011-048177

PATIENT
  Age: 39 Year
  Sex: Female
  Weight: 66 kg

DRUGS (7)
  1. IMITREX [Concomitant]
     Indication: MIGRAINE
     Dosage: UNK
     Dates: start: 19950101
  2. MOTRIN [Concomitant]
     Dosage: UNK
     Dates: start: 19850101
  3. YAZ [Suspect]
     Indication: CONTRACEPTION
     Dosage: UNK
     Dates: start: 20070101, end: 20080101
  4. EXCEDRIN (MIGRAINE) [Concomitant]
  5. VICODIN [Concomitant]
     Indication: CONSTIPATION
  6. MAGNESIUM CITRATE [Concomitant]
     Indication: CONSTIPATION
  7. IBUPROFEN (ADVIL) [Concomitant]
     Indication: HEADACHE
     Dosage: UNK
     Dates: start: 19850101

REACTIONS (4)
  - INJURY [None]
  - PAIN [None]
  - DEEP VEIN THROMBOSIS [None]
  - THROMBOSIS [None]
